FAERS Safety Report 13317435 (Version 1)
Quarter: 2017Q1

REPORT INFORMATION
  Report Type: Spontaneous
  Country: US (occurrence: US)
  Receive Date: 20170310
  Receipt Date: 20170310
  Transmission Date: 20170428
  Serious: Yes (Other)
  Sender: FDA-Public Use
  Company Number: US-SUN PHARMACEUTICAL INDUSTRIES LTD-2017US-135546

PATIENT
  Age: 69 Year
  Sex: Male

DRUGS (3)
  1. CIPROFLOXACIN. [Concomitant]
     Active Substance: CIPROFLOXACIN
     Indication: CHOLECYSTITIS ACUTE
     Dosage: UNK
     Route: 065
  2. METRONIDAZOLE. [Concomitant]
     Active Substance: METRONIDAZOLE
     Indication: CHOLECYSTITIS ACUTE
     Dosage: UNK
     Route: 065
  3. ONDANSETRON [Suspect]
     Active Substance: ONDANSETRON
     Indication: NAUSEA
     Dosage: UNK
     Route: 042

REACTIONS (1)
  - Ventricular tachycardia [Recovered/Resolved]
